FAERS Safety Report 4851319-1 (Version None)
Quarter: 2005Q4

REPORT INFORMATION
  Report Type: 
  Country: None (occurrence: None)
  Receive Date: 20051208
  Receipt Date: 20051129
  Transmission Date: 20060501
  Serious: Yes (Death)
  Sender: FDA-Public Use
  Company Number: TPG2005A00492

PATIENT
  Sex: Male

DRUGS (1)
  1. ACTOS [Suspect]
     Indication: DIABETES MELLITUS
     Dosage: PER ORAL
     Route: 048

REACTIONS (5)
  - BONE MARROW FAILURE [None]
  - BONE MARROW TOXICITY [None]
  - DRUG TOXICITY [None]
  - MYELODYSPLASTIC SYNDROME [None]
  - PNEUMONIA [None]
